FAERS Safety Report 8003382-7 (Version None)
Quarter: 2011Q4

REPORT INFORMATION
  Report Type: 
  Country: None (occurrence: None)
  Receive Date: 20111222
  Receipt Date: 20111214
  Transmission Date: 20120403
  Serious: Yes (Hospitalization, Other)
  Sender: FDA-Public Use
  Company Number: PHEH2007US14304

PATIENT
  Sex: Male
  Weight: 82.993 kg

DRUGS (34)
  1. PRINIVIL [Concomitant]
  2. NITROGLYCERIN [Concomitant]
  3. CYMBALTA [Concomitant]
  4. LEVAQUIN [Concomitant]
  5. POTASSIUM CHLORIDE [Concomitant]
  6. PLAVIX [Concomitant]
  7. TAXOTERE [Concomitant]
     Dosage: UNK
  8. COREG [Concomitant]
  9. ZESTRIL [Concomitant]
  10. ANTIBIOTICS [Concomitant]
     Route: 042
  11. GABAPENTIN [Concomitant]
  12. CHEMOTHERAPEUTICS NOS [Concomitant]
  13. NASONEX [Concomitant]
  14. COMPAZINE [Concomitant]
  15. LUPRON [Concomitant]
  16. EFFEXOR [Concomitant]
  17. PROZAC [Concomitant]
     Dosage: 20 MG, QD
     Route: 048
  18. RESTORIL [Concomitant]
  19. NEURONTIN [Concomitant]
  20. AMBIEN [Concomitant]
  21. OXYCONTIN [Concomitant]
  22. MORPHINE SULFATE [Concomitant]
  23. PERCOCET [Concomitant]
  24. KLOR-CON [Concomitant]
  25. PROCRIT                            /00909301/ [Concomitant]
  26. ZOCOR [Concomitant]
  27. COUMADIN [Concomitant]
  28. CLARINEX                                /USA/ [Concomitant]
  29. LASIX [Concomitant]
  30. ASPIRIN [Concomitant]
  31. AREDIA [Suspect]
     Indication: PROSTATE CANCER METASTATIC
     Dosage: 90 MG, QW4
     Dates: start: 20050117
  32. ZOMETA [Suspect]
     Indication: PROSTATE CANCER METASTATIC
     Dosage: 4 MG, QMO
     Dates: start: 20031120
  33. PREDNISONE TAB [Concomitant]
  34. LISINOPRIL [Concomitant]

REACTIONS (99)
  - EPISTAXIS [None]
  - ARTHRITIS [None]
  - SCIATICA [None]
  - CONSTIPATION [None]
  - MUSCLE SPASMS [None]
  - PARAESTHESIA [None]
  - CARDIOMYOPATHY [None]
  - DILATATION ATRIAL [None]
  - DECREASED APPETITE [None]
  - COLON ADENOMA [None]
  - DEHYDRATION [None]
  - OSTEOPOROSIS [None]
  - CHRONIC OBSTRUCTIVE PULMONARY DISEASE [None]
  - OSTEOARTHRITIS [None]
  - ANAEMIA [None]
  - GAIT DISTURBANCE [None]
  - FATIGUE [None]
  - VERTIGO [None]
  - URINARY TRACT INFECTION [None]
  - SYNCOPE [None]
  - CARDIOMEGALY [None]
  - VENTRICULAR EXTRASYSTOLES [None]
  - VISUAL IMPAIRMENT [None]
  - DIARRHOEA [None]
  - ENCEPHALOMALACIA [None]
  - HYPERLIPIDAEMIA [None]
  - DEPRESSION [None]
  - AORTIC ANEURYSM [None]
  - SCOLIOSIS [None]
  - BULLOUS LUNG DISEASE [None]
  - VASCULAR CALCIFICATION [None]
  - ABNORMAL LOSS OF WEIGHT [None]
  - ANXIETY [None]
  - ANGINA PECTORIS [None]
  - BREATH ODOUR [None]
  - DYSPHONIA [None]
  - INTERSTITIAL LUNG DISEASE [None]
  - DYSPNOEA EXERTIONAL [None]
  - OESOPHAGEAL DISORDER [None]
  - CAROTID ARTERY STENOSIS [None]
  - BUNDLE BRANCH BLOCK RIGHT [None]
  - VOMITING [None]
  - CEREBROVASCULAR ACCIDENT [None]
  - LACRIMATION DECREASED [None]
  - PRESBYOPIA [None]
  - OSTEONECROSIS OF JAW [None]
  - FISTULA [None]
  - METASTASES TO LARGE INTESTINE [None]
  - HYPOKALAEMIA [None]
  - ABDOMINAL PAIN [None]
  - BLINDNESS UNILATERAL [None]
  - NEPHROPATHY [None]
  - DEVICE MALFUNCTION [None]
  - NEUROPATHY PERIPHERAL [None]
  - TRICHIASIS [None]
  - SKELETAL INJURY [None]
  - CARDIAC FAILURE CONGESTIVE [None]
  - RENAL FAILURE CHRONIC [None]
  - ECZEMA [None]
  - TOTAL LUNG CAPACITY DECREASED [None]
  - CHEST PAIN [None]
  - ARTERIOSCLEROSIS [None]
  - DIVERTICULUM [None]
  - CORONARY ARTERY DISEASE [None]
  - SINUS BRADYCARDIA [None]
  - TRICUSPID VALVE INCOMPETENCE [None]
  - PAIN [None]
  - BONE DISORDER [None]
  - DENTURE WEARER [None]
  - DIZZINESS [None]
  - DERMAL CYST [None]
  - UPPER RESPIRATORY TRACT INFECTION [None]
  - HYPOTENSION [None]
  - DYSURIA [None]
  - ATELECTASIS [None]
  - DEFORMITY [None]
  - BACK PAIN [None]
  - MOUTH ULCERATION [None]
  - WOUND DEHISCENCE [None]
  - HYPERTENSION [None]
  - OEDEMA PERIPHERAL [None]
  - NAUSEA [None]
  - ISCHAEMIC CARDIOMYOPATHY [None]
  - MITRAL VALVE INCOMPETENCE [None]
  - PNEUMONIA [None]
  - PROCTITIS [None]
  - TRANSIENT ISCHAEMIC ATTACK [None]
  - AGE-RELATED MACULAR DEGENERATION [None]
  - EYE PAIN [None]
  - EMOTIONAL DISTRESS [None]
  - GINGIVITIS [None]
  - LUMBAR RADICULOPATHY [None]
  - HYPOAESTHESIA [None]
  - EJECTION FRACTION DECREASED [None]
  - DYSPHAGIA [None]
  - CEREBRAL ATROPHY [None]
  - ELECTROCARDIOGRAM T WAVE ABNORMAL [None]
  - URINARY RETENTION [None]
  - LYMPHOMA [None]
